FAERS Safety Report 6641579-9 (Version None)
Quarter: 2010Q1

REPORT INFORMATION
  Report Type: 
  Country: None (occurrence: None)
  Receive Date: 20100317
  Receipt Date: 20100317
  Transmission Date: 20100710
  Serious: Yes (Other)
  Sender: FDA-Public Use
  Company Number: None

PATIENT
  Age: 48 Year
  Sex: Female
  Weight: 66 kg

DRUGS (12)
  1. COLISTIMETHATE SODIUM [Suspect]
     Indication: BACTERIAL INFECTION
     Dosage: 100MG Q8HOURS IV
     Route: 042
     Dates: start: 20100121
  2. LANSOPRAZOLE [Concomitant]
  3. DOCUSATE [Concomitant]
  4. GUAIFENESIN [Concomitant]
  5. ASCORBIC ACID [Concomitant]
  6. M.V.I. [Concomitant]
  7. FLUCONAZOLE [Concomitant]
  8. NEUPOGEN [Concomitant]
  9. FENTANYL [Concomitant]
  10. DAPTOMYCIN [Concomitant]
  11. HEPARIN [Concomitant]
  12. ACYCLOVIR [Concomitant]

REACTIONS (1)
  - HYPOAESTHESIA ORAL [None]
